FAERS Safety Report 12519998 (Version 9)
Quarter: 2019Q1

REPORT INFORMATION
  Report Type: Spontaneous
  Country: US (occurrence: US)
  Receive Date: 20160630
  Receipt Date: 20190115
  Transmission Date: 20190417
  Serious: No
  Sender: FDA-Public Use
  Company Number: US-PFIZER INC-2016323118

PATIENT
  Age: 57 Year
  Sex: Male
  Weight: 99.79 kg

DRUGS (13)
  1. AMLODIPINE [Concomitant]
     Active Substance: AMLODIPINE BESYLATE
     Indication: BLOOD PRESSURE ABNORMAL
     Dosage: 5 MG, 1X/DAY
     Route: 048
     Dates: start: 201510
  2. DULOXETINE. [Concomitant]
     Active Substance: DULOXETINE
     Dosage: 60 MG, 1X/DAY
     Route: 048
     Dates: start: 201510
  3. LYRICA [Suspect]
     Active Substance: PREGABALIN
     Indication: PAIN
     Dosage: 300 MG, UNK
     Route: 048
  4. LYRICA [Suspect]
     Active Substance: PREGABALIN
     Indication: MUSCLE DISORDER
     Dosage: 300 MG, 3X/DAY, (1 CAP TID)
     Route: 048
     Dates: start: 20170907
  5. ETODOLAC. [Concomitant]
     Active Substance: ETODOLAC
     Indication: ABNORMAL BEHAVIOUR
     Dosage: 500 MG, MORNING AND NIGHT
     Route: 048
  6. LYRICA [Suspect]
     Active Substance: PREGABALIN
     Indication: NEGATIVE THOUGHTS
     Dosage: 300 MG, TWICE A DAY (IN THE MORNING AND EVENING)
     Route: 048
  7. LEVOTHYROXINE. [Concomitant]
     Active Substance: LEVOTHYROXINE
     Dosage: 50 MG, 1X/DAY
     Route: 048
  8. SAW PALMETTO [Concomitant]
     Active Substance: HERBALS\SAW PALMETTO
     Indication: PROSTATIC DISORDER
     Dosage: 450 MG, IN THE MORNING AND NIGHT
     Route: 048
  9. LYRICA [Suspect]
     Active Substance: PREGABALIN
     Indication: NEURALGIA
     Dosage: 300 MG, TWICE A DAY (IN THE MORNING AND AT NIGHT)
     Route: 048
     Dates: start: 201602
  10. LYRICA [Suspect]
     Active Substance: PREGABALIN
     Indication: OSTEOARTHRITIS
     Dosage: 600 MG, TWICE A DAY (TWO CAPSULES TWO TIMES A DAY)
     Route: 048
  11. LYRICA [Suspect]
     Active Substance: PREGABALIN
     Indication: TYPE 2 DIABETES MELLITUS
  12. LISINOPRIL. [Concomitant]
     Active Substance: LISINOPRIL
     Indication: BLOOD PRESSURE ABNORMAL
     Dosage: 20 MG, 1X/DAY
     Route: 048
  13. FISH OIL [Concomitant]
     Active Substance: FISH OIL
     Dosage: 1000 MG, IN THE MORNING AND NIGHT
     Route: 048

REACTIONS (21)
  - Feeling cold [Recovered/Resolved]
  - Insomnia [Recovered/Resolved]
  - Musculoskeletal pain [Recovered/Resolved]
  - Bronchitis [Unknown]
  - Prescribed overdose [Unknown]
  - Asthenia [Recovered/Resolved]
  - Dyspnoea [Recovered/Resolved]
  - Nightmare [Recovered/Resolved]
  - Hypersomnia [Not Recovered/Not Resolved]
  - Dehydration [Unknown]
  - Hyperhidrosis [Recovered/Resolved]
  - Back pain [Recovered/Resolved]
  - Feeling abnormal [Recovered/Resolved]
  - Hypersensitivity [Unknown]
  - Intentional product use issue [Unknown]
  - Muscle spasms [Recovered/Resolved]
  - Decreased appetite [Recovered/Resolved]
  - Pain [Recovered/Resolved]
  - Cold sweat [Not Recovered/Not Resolved]
  - Weight decreased [Recovered/Resolved]
  - Musculoskeletal chest pain [Recovered/Resolved]

NARRATIVE: CASE EVENT DATE: 20160623
